FAERS Safety Report 5951201-2 (Version None)
Quarter: 2008Q4

REPORT INFORMATION
  Report Type: 
  Country: None (occurrence: None)
  Receive Date: 20081111
  Receipt Date: 20081111
  Transmission Date: 20090506
  Serious: Yes (Life-Threatening)
  Sender: FDA-Public Use
  Company Number: None

PATIENT
  Age: 39 Year
  Sex: Male
  Weight: 81.6475 kg

DRUGS (1)
  1. GABAPENTIN [Suspect]
     Indication: BIPOLAR I DISORDER
     Dosage: 2400 MG 6/DAY -4/2- PO
     Route: 048
     Dates: start: 19980801, end: 20081110

REACTIONS (6)
  - DISTURBANCE IN ATTENTION [None]
  - FEELING OF DESPAIR [None]
  - PRODUCT QUALITY ISSUE [None]
  - PSYCHIATRIC SYMPTOM [None]
  - SUICIDAL IDEATION [None]
  - TENSION [None]
